FAERS Safety Report 14209017 (Version 3)
Quarter: 2020Q3

REPORT INFORMATION
  Report Type: Spontaneous
  Country: US (occurrence: US)
  Receive Date: 20171121
  Receipt Date: 20200724
  Transmission Date: 20201102
  Serious: Yes (Death, Hospitalization)
  Sender: FDA-Public Use
  Company Number: US-JNJFOC-20171103833

PATIENT
  Age: 79 Year
  Sex: Male

DRUGS (2)
  1. XARELTO [Suspect]
     Active Substance: RIVAROXABAN
     Indication: DEEP VEIN THROMBOSIS
     Route: 048
     Dates: start: 20151102, end: 20151112
  2. XARELTO [Suspect]
     Active Substance: RIVAROXABAN
     Dosage: THERAPY START DATE :NOV?2015
     Route: 048
     Dates: end: 20151119

REACTIONS (3)
  - Haematuria [Recovering/Resolving]
  - Cerebral haemorrhage [Fatal]
  - Haemoptysis [Recovered/Resolved]

NARRATIVE: CASE EVENT DATE: 20151109
